FAERS Safety Report 16326819 (Version 2)
Quarter: 2019Q3

REPORT INFORMATION
  Report Type: Spontaneous
  Country: US (occurrence: US)
  Receive Date: 20190517
  Receipt Date: 20190830
  Transmission Date: 20191004
  Serious: No
  Sender: FDA-Public Use
  Company Number: US-EMD SERONO-9090803

PATIENT
  Age: 29 Year
  Sex: Female

DRUGS (3)
  1. REBIF [Suspect]
     Active Substance: INTERFERON BETA-1A
     Route: 058
     Dates: start: 20181107, end: 20190415
  2. REBIF [Suspect]
     Active Substance: INTERFERON BETA-1A
     Indication: MULTIPLE SCLEROSIS
     Route: 058
     Dates: start: 20181031, end: 201811
  3. GAMUNEX [Suspect]
     Active Substance: HUMAN IMMUNOGLOBULIN G
     Indication: MULTIPLE SCLEROSIS
     Dosage: THE PATIENT REPORTED SHE RECEIVED EVERY 4 WEEK INFUSIONS
     Dates: start: 201806

REACTIONS (8)
  - Decreased appetite [Unknown]
  - Injection site urticaria [Recovering/Resolving]
  - Weight decreased [Unknown]
  - Influenza like illness [Recovering/Resolving]
  - Injection site bruising [Recovering/Resolving]
  - Injection site pain [Unknown]
  - Urticaria [Unknown]
  - Wrong technique in product usage process [Unknown]

NARRATIVE: CASE EVENT DATE: 201904
